FAERS Safety Report 10058600 (Version 1)
Quarter: 2014Q2

REPORT INFORMATION
  Report Type: Spontaneous
  Country: CA (occurrence: CA)
  Receive Date: 20140404
  Receipt Date: 20140404
  Transmission Date: 20141212
  Serious: Yes (Death)
  Sender: FDA-Public Use
  Company Number: CA-MALLINCKRODT-T201401698

PATIENT
  Age: 3 Month
  Sex: Female

DRUGS (1)
  1. METHADOSE [Suspect]
     Indication: CRYING
     Dosage: A LITTLE BIT, ON 3-4 OCCASIONS
     Route: 048

REACTIONS (2)
  - Poisoning [Fatal]
  - Off label use [Unknown]
